FAERS Safety Report 4340416-5 (Version None)
Quarter: 2004Q2

REPORT INFORMATION
  Report Type: 
  Country: None (occurrence: None)
  Receive Date: 20040414
  Receipt Date: 20040405
  Transmission Date: 20050107
  Serious: Yes (Hospitalization)
  Sender: FDA-Public Use
  Company Number: 2004208002FR

PATIENT
  Age: 60 Year
  Sex: Male

DRUGS (3)
  1. XALATAN [Suspect]
     Dosage: OPHTHALMIC
     Route: 047
     Dates: start: 20040201, end: 20040201
  2. BACTRIM [Suspect]
     Indication: IMMUNODEFICIENCY
     Dates: end: 20040201
  3. FLECAINE [Concomitant]

REACTIONS (1)
  - PYREXIA [None]
